FAERS Safety Report 8600754-4 (Version None)
Quarter: 2012Q3

REPORT INFORMATION
  Report Type: 
  Country: None (occurrence: None)
  Receive Date: 20120817
  Receipt Date: 20120807
  Transmission Date: 20120928
  Serious: Yes (Other)
  Sender: FDA-Public Use
  Company Number: US-BAYER-2012-069856

PATIENT
  Age: 27 Year
  Sex: Female
  Weight: 63.492 kg

DRUGS (6)
  1. YAZ [Suspect]
     Dosage: UNK
  2. PROZAC [Concomitant]
     Dosage: UNK
  3. VITAMIN TAB [Concomitant]
  4. ONE A DAY [Concomitant]
     Dosage: 1 PILL, QD
     Dates: start: 20100101, end: 20100412
  5. ATIVAN [Concomitant]
     Dosage: UNK
  6. YAZ [Suspect]
     Dosage: UNK
     Dates: start: 20030101, end: 20100301

REACTIONS (18)
  - ANXIETY [None]
  - PAIN [None]
  - INJURY [None]
  - GENERAL PHYSICAL HEALTH DETERIORATION [None]
  - AMNESIA [None]
  - MENTAL STATUS CHANGES [None]
  - WEIGHT INCREASED [None]
  - EMOTIONAL DISTRESS [None]
  - CEREBROVASCULAR ACCIDENT [None]
  - PHOTOPHOBIA [None]
  - CEREBRAL INFARCTION [None]
  - STRESS [None]
  - HORMONE LEVEL ABNORMAL [None]
  - HIGH RISK PREGNANCY [None]
  - SUICIDAL IDEATION [None]
  - ANHEDONIA [None]
  - HYPERACUSIS [None]
  - FATIGUE [None]
